FAERS Safety Report 7003592-1 (Version None)
Quarter: 2010Q3

REPORT INFORMATION
  Report Type: 
  Country: None (occurrence: None)
  Receive Date: 20100920
  Receipt Date: 20100913
  Transmission Date: 20110219
  Serious: Yes (Other)
  Sender: FDA-Public Use
  Company Number: US-AMGEN-KDC438668

PATIENT
  Sex: Female
  Weight: 81.7 kg

DRUGS (14)
  1. ENBREL [Suspect]
     Indication: RHEUMATOID ARTHRITIS
     Dates: start: 20091117, end: 20100802
  2. PRENATAL VITAMINS [Concomitant]
     Route: 048
     Dates: start: 20091117, end: 20100802
  3. CALCIUM WITH VITAMIN D [Concomitant]
     Route: 048
     Dates: start: 20091117, end: 20100802
  4. PLAQUENIL [Concomitant]
     Route: 048
     Dates: start: 20091117, end: 20100802
  5. LOVENOX [Concomitant]
     Dates: start: 20091117, end: 20100802
  6. DEXAMETHASONE [Concomitant]
     Route: 048
     Dates: start: 20091117, end: 20100429
  7. PROMETRIUM [Concomitant]
     Route: 067
     Dates: start: 20091117, end: 20100214
  8. CEFTIN [Concomitant]
     Route: 048
     Dates: start: 20100203, end: 20100212
  9. ZITHROMAX [Concomitant]
     Route: 048
     Dates: start: 20100217, end: 20100226
  10. PREDNISONE [Concomitant]
     Route: 048
     Dates: start: 20100217, end: 20100802
  11. INFLUENZA A (H1N1) MONOVALENT VACCINE [Concomitant]
     Dates: start: 20100316, end: 20100316
  12. ASPIRIN [Concomitant]
     Route: 048
     Dates: start: 20091117, end: 20100802
  13. SILVADENE [Concomitant]
     Route: 061
     Dates: start: 20100503, end: 20100504
  14. STOOL SOFTENER [Concomitant]
     Route: 048
     Dates: start: 20100628, end: 20100802

REACTIONS (4)
  - DELAYED DELIVERY [None]
  - GESTATIONAL DIABETES [None]
  - PREMATURE LABOUR [None]
  - PREMATURE RUPTURE OF MEMBRANES [None]
